FAERS Safety Report 9978250 (Version 1)
Quarter: 2014Q1

REPORT INFORMATION
  Report Type: Other
  Country: US (occurrence: US)
  Receive Date: 20140306
  Receipt Date: 20140306
  Transmission Date: 20141002
  Serious: Yes (Death)
  Sender: FDA-Public Use
  Company Number: US-FRI-1000054896

PATIENT
  Age: 46 Year
  Sex: Female

DRUGS (6)
  1. CITALOPRAM [Suspect]
  2. METOPROLOL [Suspect]
  3. OXYCODONE [Suspect]
  4. CLONAZEPAM [Suspect]
  5. ACETAMINOPHEN [Suspect]
  6. ETHANOL [Suspect]

REACTIONS (1)
  - Completed suicide [Fatal]
